FAERS Safety Report 12716175 (Version 17)
Quarter: 2024Q2

REPORT INFORMATION
  Report Type: Report from Study
  Country: CA (occurrence: CA)
  Receive Date: 20160906
  Receipt Date: 20240501
  Transmission Date: 20240716
  Serious: Yes (Hospitalization, Other)
  Sender: FDA-Public Use
  Company Number: PHHY2011CA67594

PATIENT
  Age: 62 Year
  Sex: Male

DRUGS (5)
  1. SANDOSTATIN LAR DEPOT [Suspect]
     Active Substance: OCTREOTIDE ACETATE
     Indication: Neuroendocrine carcinoma
     Dosage: 30 MG, QMO
     Route: 030
     Dates: start: 20080304
  2. SANDOSTATIN LAR DEPOT [Suspect]
     Active Substance: OCTREOTIDE ACETATE
  3. SANDOSTATIN LAR DEPOT [Suspect]
     Active Substance: OCTREOTIDE ACETATE
  4. ROSUVASTATIN [Concomitant]
     Active Substance: ROSUVASTATIN
     Indication: Product used for unknown indication
     Dosage: UNK
     Route: 065
  5. INSULIN NOS [Concomitant]
     Active Substance: INSULIN NOS
     Indication: Product used for unknown indication
     Dosage: UNK
     Route: 065

REACTIONS (16)
  - Back pain [Unknown]
  - Chest pain [Unknown]
  - Device occlusion [Unknown]
  - Blood pressure increased [Unknown]
  - Diabetes mellitus [Unknown]
  - Sudden hearing loss [Unknown]
  - Chills [Unknown]
  - Heart rate irregular [Unknown]
  - Pyrexia [Recovered/Resolved]
  - Escherichia infection [Unknown]
  - Abdominal pain lower [Unknown]
  - Heart rate increased [Unknown]
  - Abdominal distension [Unknown]
  - Injection site mass [Recovering/Resolving]
  - Injection site reaction [Recovering/Resolving]
  - Injection site pain [Recovering/Resolving]

NARRATIVE: CASE EVENT DATE: 20160101
